FAERS Safety Report 19471872 (Version 1)
Quarter: 2021Q2

REPORT INFORMATION
  Report Type: Spontaneous
  Country: US (occurrence: US)
  Receive Date: 20210629
  Receipt Date: 20210629
  Transmission Date: 20210717
  Serious: Yes (Other)
  Sender: FDA-Public Use
  Company Number: None

PATIENT
  Age: 76 Year
  Sex: Female

DRUGS (19)
  1. CIMZIA [Suspect]
     Active Substance: CERTOLIZUMAB PEGOL
     Indication: CROHN^S DISEASE
     Dosage: ?          OTHER FREQUENCY:EVERY 4 WEEKS;?
     Route: 058
     Dates: start: 20150918
  2. ALBUTEROL. [Concomitant]
     Active Substance: ALBUTEROL
  3. CYMBALTA [Concomitant]
     Active Substance: DULOXETINE HYDROCHLORIDE
  4. FLOVENT HFA AER [Concomitant]
  5. LOSARTAN/HCT [Concomitant]
     Active Substance: HYDROCHLOROTHIAZIDE\LOSARTAN POTASSIUM
  6. RESTASIS [Concomitant]
     Active Substance: CYCLOSPORINE
  7. SINEMET [Concomitant]
     Active Substance: CARBIDOPA\LEVODOPA
  8. VITAMIN B12 [Concomitant]
     Active Substance: CYANOCOBALAMIN
  9. CLONAZEPAM. [Concomitant]
     Active Substance: CLONAZEPAM
  10. VITAMIN D3 [Concomitant]
     Active Substance: CHOLECALCIFEROL
  11. MULTIPLE VITAMNIN [Concomitant]
  12. GABAPENTIN. [Concomitant]
     Active Substance: GABAPENTIN
  13. MIRVASO [Concomitant]
     Active Substance: BRIMONIDINE TARTRATE
  14. MORPHINE SUL [Concomitant]
     Active Substance: MORPHINE SULFATE
  15. NALTREXONE [Concomitant]
     Active Substance: NALTREXONE
  16. LEVOFLOXACIN. [Concomitant]
     Active Substance: LEVOFLOXACIN
  17. METOPROL TAR [Concomitant]
  18. TOLTERODINE [Concomitant]
     Active Substance: TOLTERODINE
  19. NEURONTIN [Concomitant]
     Active Substance: GABAPENTIN

REACTIONS (5)
  - Renal disorder [None]
  - Diarrhoea [None]
  - Therapy interrupted [None]
  - Vomiting [None]
  - Crohn^s disease [None]

NARRATIVE: CASE EVENT DATE: 20210625
